FAERS Safety Report 11866636 (Version 1)
Quarter: 2015Q4

REPORT INFORMATION
  Report Type: Spontaneous
  Country: US (occurrence: US)
  Receive Date: 20151224
  Receipt Date: 20151224
  Transmission Date: 20160305
  Serious: Yes (Hospitalization)
  Sender: FDA-Public Use
  Company Number: US-SHIRE-US201516424

PATIENT
  Age: 49 Year
  Sex: Male
  Weight: 77.11 kg

DRUGS (2)
  1. GATTEX [Suspect]
     Active Substance: TEDUGLUTIDE\WATER
     Indication: SHORT-BOWEL SYNDROME
     Dosage: 0.3855 MG, 1X/DAY:QD
     Route: 058
  2. LIPIDS NOS W/PROTEINS NOS/VITAMINS NOS [Concomitant]
     Indication: NUTRITIONAL SUPPLEMENTATION
     Dosage: UNK
     Route: 065

REACTIONS (2)
  - Medical device complication [Unknown]
  - Stoma care [Unknown]

NARRATIVE: CASE EVENT DATE: 20141214
